FAERS Safety Report 7919573-7 (Version None)
Quarter: 2011Q4

REPORT INFORMATION
  Report Type: 
  Country: None (occurrence: None)
  Receive Date: 20111115
  Receipt Date: 20111107
  Transmission Date: 20120403
  Serious: Yes (Life-Threatening, Other)
  Sender: FDA-Public Use
  Company Number: LEO-2011-00903

PATIENT
  Sex: Female

DRUGS (1)
  1. INNOHEP [Suspect]
     Indication: PULMONARY EMBOLISM
     Dosage: 175 IU/KG+ 10% EKSTRA DOSE (175 IU/KG), SUBCUTANEOUS; 175 IU/KG+ 10% EXTRA DOSE
     Route: 058

REACTIONS (4)
  - CONDITION AGGRAVATED [None]
  - POST PROCEDURAL COMPLICATION [None]
  - OFF LABEL USE [None]
  - PULMONARY EMBOLISM [None]
